FAERS Safety Report 4808702-X (Version None)
Quarter: 2005Q4

REPORT INFORMATION
  Report Type: 
  Country: None (occurrence: None)
  Receive Date: 20051025
  Receipt Date: 20051019
  Transmission Date: 20060501
  Serious: Yes (Hospitalization, Other)
  Sender: FDA-Public Use
  Company Number: 200519287GDDC

PATIENT
  Age: 66 Year
  Sex: Female

DRUGS (3)
  1. ARAVA [Suspect]
     Indication: RHEUMATOID ARTHRITIS
     Dosage: DOSE: UNK
     Route: 048
     Dates: start: 20030923, end: 20050515
  2. METHOTREXATE [Concomitant]
     Dosage: DOSE: UNK
  3. PREDNISONE TAB [Concomitant]
     Dosage: DOSE: UNK

REACTIONS (1)
  - RENAL DISORDER [None]
